FAERS Safety Report 21784149 (Version 1)
Quarter: 2022Q4

REPORT INFORMATION
  Report Type: Spontaneous
  Country: US (occurrence: None)
  Receive Date: 20221223
  Receipt Date: 20221223
  Transmission Date: 20230113
  Serious: Yes (Hospitalization)
  Sender: FDA-Public Use
  Company Number: None

PATIENT
  Age: 9 Year
  Sex: Male

DRUGS (1)
  1. NOVOSEVEN RT [Suspect]
     Active Substance: COAGULATION FACTOR VIIA RECOMBINANT HUMAN
     Indication: Coagulopathy
     Dosage: 2MG  INTRAVENOUS??ONCE DAILY AS NEEDED
     Route: 042
     Dates: start: 20210415

REACTIONS (1)
  - Epistaxis [None]

NARRATIVE: CASE EVENT DATE: 20221217
